FAERS Safety Report 9673138 (Version 2)
Quarter: 2014Q1

REPORT INFORMATION
  Report Type: Spontaneous
  Country: US (occurrence: US)
  Receive Date: 20131106
  Receipt Date: 20140303
  Transmission Date: 20141002
  Serious: No
  Sender: FDA-Public Use
  Company Number: US-AMGEN-USASP2013072418

PATIENT
  Age: 44 Year
  Sex: Female
  Weight: 59 kg

DRUGS (7)
  1. ENBREL [Suspect]
     Indication: RHEUMATOID ARTHRITIS
     Dosage: 50 MG, QWK
     Route: 058
     Dates: start: 201305, end: 201305
  2. HYDROCHLOROTHIAZIDE WITH TRIAMTERENE [Concomitant]
     Dosage: 25 TO 50 MG
  3. PERCOCET                           /00446701/ [Concomitant]
     Dosage: 7.5-500
  4. FLEXERIL                           /00428402/ [Concomitant]
     Dosage: 10 MG, UNK
  5. NAPROXEN [Concomitant]
     Dosage: 500 MG, UNK
  6. AMBIEN [Concomitant]
     Dosage: 5 MG, UNK
  7. SYNTHROID [Concomitant]
     Dosage: 88 MUG, UNK

REACTIONS (1)
  - Cyst [Recovered/Resolved]
